FAERS Safety Report 20210462 (Version 2)
Quarter: 2021Q4

REPORT INFORMATION
  Report Type: Report from Study
  Country: IT (occurrence: IT)
  Receive Date: 20211221
  Receipt Date: 20211223
  Transmission Date: 20220303
  Serious: Yes (Hospitalization)
  Sender: FDA-Public Use
  Company Number: None

PATIENT
  Age: 62 Year
  Sex: Female

DRUGS (3)
  1. MONTELUKAST [Suspect]
     Active Substance: MONTELUKAST SODIUM
     Indication: Asthma
     Dosage: MONTELUKAST SODIUM
     Route: 048
     Dates: start: 20210101
  2. FLUNISOLIDE [Suspect]
     Active Substance: FLUNISOLIDE
     Indication: Asthma
     Dosage: LUNIS 5 MG / 14 ML NASAL SPRAY, SOLUTION
     Route: 055
     Dates: start: 20210101
  3. FOSTER [Suspect]
     Active Substance: BECLOMETHASONE\FORMOTEROL
     Indication: Asthma
     Dosage: FOSTER 100/6 MICROGRAMS FOR DISPENSING PRESSURIZED SOLUTION FOR IN , UNIT DOSE : 338.4 MG
     Route: 055
     Dates: start: 20210101

REACTIONS (1)
  - Dyspnoea [Unknown]

NARRATIVE: CASE EVENT DATE: 20211007
